FAERS Safety Report 18180863 (Version 1)
Quarter: 2020Q3

REPORT INFORMATION
  Report Type: Spontaneous
  Country: US (occurrence: US)
  Receive Date: 20200821
  Receipt Date: 20200821
  Transmission Date: 20201103
  Serious: No
  Sender: FDA-Public Use
  Company Number: US-GLAXOSMITHKLINE-US2020AMR161175

PATIENT
  Sex: Female
  Weight: 102.9 kg

DRUGS (2)
  1. RIMEGEPANT SULFATE [Suspect]
     Active Substance: RIMEGEPANT SULFATE
     Indication: MIGRAINE
     Dosage: 75 MG, QD
     Route: 048
     Dates: start: 20200709, end: 20200709
  2. IMITREX [Suspect]
     Active Substance: SUMATRIPTAN SUCCINATE
     Indication: MIGRAINE

REACTIONS (14)
  - Pallor [Recovered/Resolved]
  - Lip discolouration [Recovered/Resolved]
  - Muscle twitching [Recovered/Resolved]
  - Anxiety [Unknown]
  - Blood pressure increased [Recovered/Resolved]
  - Panic attack [Recovered/Resolved]
  - Inappropriate schedule of product administration [Unknown]
  - Crying [Recovered/Resolved]
  - Headache [Recovering/Resolving]
  - Withdrawal syndrome [Unknown]
  - Fear [Unknown]
  - Palpitations [Unknown]
  - Nausea [Unknown]
  - Muscle spasms [Unknown]
